FAERS Safety Report 21335254 (Version 2)
Quarter: 2022Q4

REPORT INFORMATION
  Report Type: Spontaneous
  Country: US (occurrence: US)
  Receive Date: 20220915
  Receipt Date: 20221007
  Transmission Date: 20230113
  Serious: No
  Sender: FDA-Public Use
  Company Number: US-GLAXOSMITHKLINE-US2022131218

PATIENT
  Sex: Female

DRUGS (1)
  1. ZEJULA [Suspect]
     Active Substance: NIRAPARIB
     Indication: Ovarian cancer
     Dosage: 100 MG, QD

REACTIONS (12)
  - Fatigue [Unknown]
  - Constipation [Unknown]
  - Abdominal pain [Unknown]
  - Insomnia [Unknown]
  - Malaise [Unknown]
  - Ill-defined disorder [Unknown]
  - Asthenia [Unknown]
  - Feeling abnormal [Unknown]
  - Crying [Unknown]
  - Cystitis [Unknown]
  - Memory impairment [Unknown]
  - Emotional disorder [Unknown]
